FAERS Safety Report 19912386 (Version 1)
Quarter: 2021Q4

REPORT INFORMATION
  Report Type: Spontaneous
  Country: US (occurrence: US)
  Receive Date: 20211001
  Receipt Date: 20211001
  Transmission Date: 20220304
  Serious: No
  Sender: FDA-Public Use
  Company Number: None

PATIENT
  Age: 37 Year
  Sex: Female
  Weight: 88.9 kg

DRUGS (2)
  1. ENBREL [Suspect]
     Active Substance: ETANERCEPT
     Indication: Iridocyclitis
     Route: 058
     Dates: start: 202106
  2. ENBREL [Suspect]
     Active Substance: ETANERCEPT
     Indication: Spondyloarthropathy

REACTIONS (2)
  - Vaginal infection [None]
  - Therapy interrupted [None]
